FAERS Safety Report 4468322-6 (Version None)
Quarter: 2004Q4

REPORT INFORMATION
  Report Type: 
  Country: None (occurrence: None)
  Receive Date: 20041007
  Receipt Date: 20040928
  Transmission Date: 20050328
  Serious: Yes (Other)
  Sender: FDA-Public Use
  Company Number: FR-ROCHE-381694

PATIENT
  Age: 70 Year
  Sex: Female

DRUGS (1)
  1. RIVOTRIL [Suspect]
     Indication: CONVULSION
     Route: 058

REACTIONS (2)
  - CONVULSION [None]
  - MEDICATION ERROR [None]
